FAERS Safety Report 16936753 (Version 1)
Quarter: 2019Q4

REPORT INFORMATION
  Report Type: Spontaneous
  Country: JP (occurrence: JP)
  Receive Date: 20191018
  Receipt Date: 20191018
  Transmission Date: 20200122
  Serious: Yes (Hospitalization, Other)
  Sender: FDA-Public Use
  Company Number: JP-SA-2019SA284569

PATIENT
  Age: 83 Year
  Sex: Female

DRUGS (3)
  1. TRIAMCINOLONE ACETONIDE. [Suspect]
     Active Substance: TRIAMCINOLONE ACETONIDE
     Dosage: 4 MG, QD LOW-DOSE
     Route: 048
  2. THEOPHYLLINE [Suspect]
     Active Substance: THEOPHYLLINE ANHYDROUS
     Dosage: UNK UNK, UNK
     Route: 065
  3. FLUTICASONE. [Suspect]
     Active Substance: FLUTICASONE
     Dosage: 1000 PG, QD

REACTIONS (8)
  - Chest discomfort [Unknown]
  - Wheezing [Recovered/Resolved]
  - Cough [Unknown]
  - Asthma [Unknown]
  - Bronchitis [Unknown]
  - Sleep disorder [Unknown]
  - Bronchitis bacterial [Unknown]
  - Severe asthma with fungal sensitisation [Unknown]
